FAERS Safety Report 9703299 (Version 2)
Quarter: 2013Q4

REPORT INFORMATION
  Report Type: Spontaneous
  Country: US (occurrence: US)
  Receive Date: 20131122
  Receipt Date: 20131210
  Transmission Date: 20140711
  Serious: Yes (Other)
  Sender: FDA-Public Use
  Company Number: US-ACCORD-020406

PATIENT
  Age: 16 Year
  Sex: Female

DRUGS (3)
  1. NO DRUG NAME [Concomitant]
  2. DIHYDROCODEINE/PARACETAMOL [Concomitant]
  3. ESCITALOPRAM [Suspect]
     Dosage: TOOK ESCITALOPRAM OVERDOSE

REACTIONS (3)
  - Overdose [Unknown]
  - Electrocardiogram QT prolonged [Recovered/Resolved]
  - Electrocardiogram QRS complex prolonged [Recovered/Resolved]
